FAERS Safety Report 10612779 (Version 1)
Quarter: 2014Q4

REPORT INFORMATION
  Report Type: Spontaneous
  Country: JP (occurrence: JP)
  Receive Date: 20141127
  Receipt Date: 20141127
  Transmission Date: 20150529
  Serious: Yes (Other)
  Sender: FDA-Public Use
  Company Number: JP-009507513-1411JPN011335

PATIENT
  Sex: Male

DRUGS (3)
  1. CISPLATIN. [Concomitant]
     Active Substance: CISPLATIN
     Dosage: DAILY DOSAGE UNKNOWN
     Route: 051
  2. PROPECIA [Suspect]
     Active Substance: FINASTERIDE
     Dosage: DAILY DOSAGE UNKNOWN
     Route: 048
  3. TS-1 [Concomitant]
     Active Substance: GIMERACIL\OTERACIL\TEGAFUR
     Dosage: DAILY DOSAGE UNKNOWN
     Route: 048

REACTIONS (2)
  - Neoplasm malignant [Unknown]
  - Alopecia [Unknown]
